FAERS Safety Report 20843393 (Version 5)
Quarter: 2022Q2

REPORT INFORMATION
  Report Type: Spontaneous
  Country: CZ (occurrence: CZ)
  Receive Date: 20220518
  Receipt Date: 20220622
  Transmission Date: 20220721
  Serious: Yes (Other)
  Sender: FDA-Public Use
  Company Number: CZ-MYLANLABS-2022M1035793

PATIENT
  Sex: Male

DRUGS (15)
  1. OXALIPLATIN [Suspect]
     Active Substance: OXALIPLATIN
     Indication: Adenocarcinoma
     Dosage: FOLFOX-6 REGIMEN WITH CETUXIMAB
     Dates: start: 201802, end: 2018
  2. OXALIPLATIN [Suspect]
     Active Substance: OXALIPLATIN
     Indication: Colorectal cancer
     Dosage: UNK UNK, CYCLE (CUMULATIVE DOSE: 6 CYCLICAL)
     Dates: start: 201802
  3. IRINOTECAN [Suspect]
     Active Substance: IRINOTECAN
     Indication: Colorectal cancer
     Dosage: UNK (SECOND-LINE CHEMOTHERAPY WITH FOLFIRI)
     Dates: start: 201906, end: 202006
  4. LEUCOVORIN [Suspect]
     Active Substance: LEUCOVORIN
     Indication: Adenocarcinoma
     Dosage: AS PART OF FOLFOX 6 THERAPY
     Dates: start: 201802, end: 2018
  5. FLUOROURACIL [Suspect]
     Active Substance: FLUOROURACIL
     Indication: Adenocarcinoma
     Dosage: WITH THE FOLFOX-6 REGIMEN WITH CETUXIMAB
     Dates: start: 201802, end: 2018
  6. FLUOROURACIL [Suspect]
     Active Substance: FLUOROURACIL
     Indication: Colorectal cancer
     Dosage: UNK (SECOND-LINE CHEMOTHERAPY WITH FOLFIRI )
     Dates: start: 201906, end: 202006
  7. FLUOROURACIL [Suspect]
     Active Substance: FLUOROURACIL
     Dosage: UNK, 6, CYCLE (CUMULATIVE DOSE: 6 CYCLICAL)
     Dates: start: 201802
  8. LEUCOVORIN CALCIUM [Suspect]
     Active Substance: LEUCOVORIN CALCIUM
     Indication: Colorectal cancer
     Dosage: UNK, 6 CYCLES
     Dates: start: 201802
  9. LEUCOVORIN CALCIUM [Suspect]
     Active Substance: LEUCOVORIN CALCIUM
     Dosage: UNK (FOLFOX-6 WITH CETUXIMAB 6 CYCLES )
     Dates: start: 201802, end: 2018
  10. LEUCOVORIN CALCIUM [Suspect]
     Active Substance: LEUCOVORIN CALCIUM
     Dosage: 50 MILLIGRAM (50 MG /5 MINUTES, AS PART OF FOLFOX 6 THERAPY )
     Route: 040
     Dates: start: 201802, end: 2018
  11. LEUCOVORIN [Suspect]
     Active Substance: LEUCOVORIN
     Indication: Colorectal cancer
     Dosage: UNK (SECOND-LINE CHEMOTHERAPY WITH FOLFIRI, 22 CYCLES)
     Dates: start: 201906, end: 202006
  12. LEUCOVORIN [Suspect]
     Active Substance: LEUCOVORIN
     Dosage: UNK (FOLFOX-6 WITH CETUXIMAB 6 CYCLES)
     Dates: start: 201802, end: 2018
  13. LEUCOVORIN [Suspect]
     Active Substance: LEUCOVORIN
     Dosage: UNK UNK, CYCLE (CUMULATIVE DOSE: 6 CYCLICAL)
     Dates: start: 201802
  14. CETUXIMAB [Suspect]
     Active Substance: CETUXIMAB
     Indication: Adenocarcinoma
     Dosage: UNK UNK, CYCLE (WITH FOLFOX 6 THERAPY, CUMULATIVE DOSE: 6 CYCLICAL)
     Dates: start: 201802, end: 201809
  15. CETUXIMAB [Suspect]
     Active Substance: CETUXIMAB
     Indication: Colorectal cancer

REACTIONS (3)
  - Neuropathy peripheral [Recovered/Resolved]
  - Drug intolerance [Not Recovered/Not Resolved]
  - Therapy partial responder [Unknown]
